FAERS Safety Report 19371797 (Version 1)
Quarter: 2021Q2

REPORT INFORMATION
  Report Type: Spontaneous
  Country: FR (occurrence: FR)
  Receive Date: 20210604
  Receipt Date: 20210604
  Transmission Date: 20210717
  Serious: Yes (Hospitalization)
  Sender: FDA-Public Use
  Company Number: FR-TEVA-2021-FR-1918131

PATIENT
  Age: 70 Year
  Sex: Female
  Weight: 88 kg

DRUGS (6)
  1. DOLIPRANE [Concomitant]
     Active Substance: ACETAMINOPHEN
  2. VAXZEVRIA [Suspect]
     Active Substance: AZD-1222
     Indication: COVID-19 IMMUNISATION
     Dosage: D1?ROUTE OF ADMINISTRATION: LEFT DELTOID:UNIT DOSE:1DOSAGEFORM
     Route: 030
     Dates: start: 20210315, end: 20210315
  3. OROCAL [Concomitant]
  4. CORTANCYL [Concomitant]
     Active Substance: PREDNISONE
  5. CHLORHYDRATE DE TRAMADOL [Suspect]
     Active Substance: TRAMADOL HYDROCHLORIDE
     Indication: ANALGESIC THERAPY
     Dosage: 100MILLIGRAM
     Route: 048
     Dates: start: 20210325, end: 20210329
  6. BISOPROLOL (HEMIFUMARATE DE) [Concomitant]
     Active Substance: BISOPROLOL FUMARATE

REACTIONS (1)
  - Epilepsy [Recovered/Resolved]

NARRATIVE: CASE EVENT DATE: 20210331
